FAERS Safety Report 23939646 (Version 1)
Quarter: 2024Q2

REPORT INFORMATION
  Report Type: Spontaneous
  Country: DE (occurrence: None)
  Receive Date: 20240605
  Receipt Date: 20240605
  Transmission Date: 20240716
  Serious: Yes (Other)
  Sender: FDA-Public Use
  Company Number: 2024A123787

PATIENT
  Sex: Male

DRUGS (3)
  1. DAPAGLIFLOZIN [Suspect]
     Active Substance: DAPAGLIFLOZIN
     Indication: Atrial fibrillation
     Dosage: 10.0MG UNKNOWN
     Route: 048
     Dates: start: 20231206, end: 20240410
  2. ELIQUIS [Concomitant]
     Active Substance: APIXABAN
     Indication: Atrial fibrillation
     Dosage: 2X5 MG10.0MG UNKNOWN
     Route: 048
     Dates: start: 20231206
  3. METOPROLOL SUCCINATE [Concomitant]
     Active Substance: METOPROLOL SUCCINATE
     Indication: Atrial fibrillation
     Dosage: 2X47.5MG95.0MG UNKNOWN
     Route: 048
     Dates: start: 20231206, end: 20240410

REACTIONS (1)
  - Phimosis [Recovering/Resolving]
